FAERS Safety Report 9437760 (Version 1)
Quarter: 2013Q3

REPORT INFORMATION
  Report Type: Spontaneous
  Country: US (occurrence: US)
  Receive Date: 20130802
  Receipt Date: 20130802
  Transmission Date: 20140515
  Serious: No
  Sender: FDA-Public Use
  Company Number: US-BRISTOL-MYERS SQUIBB COMPANY-17418377

PATIENT
  Age: 70 Year
  Sex: Male

DRUGS (3)
  1. COUMADIN [Suspect]
     Indication: THROMBOSIS
     Dosage: SOME TIME FULL PILL OR ELSE HALF PILL?INTERUPTED AND STARTED AFTER 6 MONTHS
  2. CELEXA [Concomitant]
  3. HEPARIN [Concomitant]
     Route: 042

REACTIONS (1)
  - Burning mouth syndrome [Not Recovered/Not Resolved]
